FAERS Safety Report 6130682-8 (Version None)
Quarter: 2009Q1

REPORT INFORMATION
  Report Type: 
  Country: None (occurrence: None)
  Receive Date: 20090323
  Receipt Date: 20081224
  Transmission Date: 20090719
  Serious: Yes (Disabling, Other)
  Sender: FDA-Public Use
  Company Number: 2008SP016367

PATIENT
  Age: 71 Year
  Sex: Male
  Weight: 68 kg

DRUGS (4)
  1. PEG-INTRON [Suspect]
     Indication: HEPATITIS C
     Dosage: 100 MCG; QW; SC
     Route: 058
     Dates: start: 20080512, end: 20080826
  2. REBETOL [Suspect]
     Indication: HEPATITIS C
     Dosage: 800 MG; QD; PO
     Route: 048
     Dates: start: 20080512, end: 20080804
  3. ALLEGRA [Concomitant]
  4. SUMIFERON [Concomitant]

REACTIONS (4)
  - ANAEMIA [None]
  - BLOOD PRESSURE DECREASED [None]
  - RENAL DISORDER [None]
  - RENAL IMPAIRMENT [None]
